FAERS Safety Report 5065543-9 (Version None)
Quarter: 2006Q3

REPORT INFORMATION
  Report Type: 
  Country: None (occurrence: None)
  Receive Date: 20060731
  Receipt Date: 20060724
  Transmission Date: 20061208
  Serious: No
  Sender: FDA-Public Use
  Company Number: NL-GLAXOSMITHKLINE-B0432102A

PATIENT
  Sex: Male

DRUGS (1)
  1. CLOBETASOL PROPIONATE [Suspect]
     Indication: DRUG USE FOR UNKNOWN INDICATION
     Dosage: .05MGG UNKNOWN
     Route: 065

REACTIONS (4)
  - ALOPECIA [None]
  - BLISTER [None]
  - DRUG INEFFECTIVE [None]
  - SKIN ATROPHY [None]
